FAERS Safety Report 8586681-X (Version None)
Quarter: 2012Q3

REPORT INFORMATION
  Report Type: 
  Country: None (occurrence: None)
  Receive Date: 20120810
  Receipt Date: 20120803
  Transmission Date: 20120928
  Serious: Yes (Other)
  Sender: FDA-Public Use
  Company Number: US-VERTEX PHARMACEUTICALS INC.-AE-2012-007618

PATIENT
  Sex: Female
  Weight: 86.714 kg

DRUGS (14)
  1. RIBASPHERE [Concomitant]
     Route: 048
  2. VICODIN [Concomitant]
     Indication: PAIN
     Route: 048
  3. ATENOLOL [Concomitant]
     Indication: HYPERTENSION
     Route: 048
  4. DIOVAN [Concomitant]
     Indication: HYPERTENSION
     Route: 048
  5. PEGASYS [Concomitant]
     Indication: HEPATITIS C
     Route: 058
     Dates: start: 20120515
  6. GLIPIZIDE [Concomitant]
     Indication: DIABETES MELLITUS
     Route: 048
  7. HYDRALAZINE HCL [Concomitant]
     Indication: HYPERTENSION
     Route: 048
  8. TRAZODONE HYDROCHLORIDE [Concomitant]
     Indication: DEPRESSION
     Route: 048
  9. METFORMIN HYDROCHLORIDE [Concomitant]
     Indication: DIABETES MELLITUS
     Route: 048
  10. ASPIRIN [Concomitant]
     Route: 048
  11. FUROSEMIDE [Concomitant]
     Indication: HYPERTENSION
     Route: 048
  12. INCIVEK [Suspect]
     Indication: HEPATITIS C
     Route: 048
     Dates: start: 20120515
  13. RIBASPHERE [Concomitant]
     Indication: HEPATITIS C
     Route: 048
     Dates: start: 20120713
  14. RIBASPHERE [Concomitant]
     Route: 048

REACTIONS (13)
  - DEPRESSION [None]
  - DIZZINESS [None]
  - VISUAL IMPAIRMENT [None]
  - CHEST PAIN [None]
  - PORTAL HYPERTENSION [None]
  - JOINT SWELLING [None]
  - EPISTAXIS [None]
  - ANORECTAL DISCOMFORT [None]
  - BLOOD GLUCOSE DECREASED [None]
  - ANAEMIA [None]
  - FATIGUE [None]
  - ASTHENIA [None]
  - GOUT [None]
